FAERS Safety Report 9322605 (Version 1)
Quarter: 2013Q2

REPORT INFORMATION
  Report Type: Spontaneous
  Country: US (occurrence: US)
  Receive Date: 20130531
  Receipt Date: 20130531
  Transmission Date: 20140414
  Serious: No
  Sender: FDA-Public Use
  Company Number: US-ASTRAZENECA-2013SE33895

PATIENT
  Sex: Male

DRUGS (1)
  1. ATACAND HCT [Suspect]
     Dosage: 32 + 12.5 MG
     Route: 048

REACTIONS (1)
  - Pollakiuria [Unknown]
